FAERS Safety Report 6169993-9 (Version None)
Quarter: 2009Q2

REPORT INFORMATION
  Report Type: 
  Country: None (occurrence: None)
  Receive Date: 20090428
  Receipt Date: 20090423
  Transmission Date: 20091009
  Serious: Yes (Life-Threatening, Hospitalization)
  Sender: FDA-Public Use
  Company Number: JP-NOVOPROD-285372

PATIENT
  Age: 89 Year
  Sex: Male
  Weight: 31 kg

DRUGS (15)
  1. LEVEMIR [Suspect]
     Indication: TYPE 2 DIABETES MELLITUS
     Dosage: 2 IU, QD
     Route: 058
     Dates: start: 20080923, end: 20090317
  2. LEVEMIR [Suspect]
     Dosage: 2 IU, QD
     Route: 058
     Dates: start: 20090401
  3. BUP-4 [Concomitant]
     Indication: NEUROGENIC BLADDER
     Dosage: 20 MG/KG, QD
     Route: 048
     Dates: start: 20090302, end: 20090317
  4. ARTIST [Concomitant]
     Indication: CARDIAC FAILURE
     Dosage: 2.5 MG, QD
     Route: 048
     Dates: start: 20071229, end: 20090317
  5. FRANDOL [Concomitant]
     Indication: CARDIAC FAILURE
     Dosage: 40 MG, QD
     Route: 062
     Dates: start: 20081011, end: 20090317
  6. GASMOTIN [Concomitant]
     Indication: GASTRIC DISORDER
     Dosage: 15 MG, QD
     Route: 048
     Dates: start: 20081011, end: 20090317
  7. EXCELASE [Concomitant]
     Dosage: 1.2 G, QD
     Dates: start: 20081102, end: 20090317
  8. MAGMITT [Concomitant]
     Indication: CONSTIPATION
     Dosage: 1980 MG, QD
     Route: 048
     Dates: start: 20081010, end: 20090317
  9. ASPIRIN [Concomitant]
     Indication: ANGINA PECTORIS
     Dosage: 100 MG, QD
     Route: 048
     Dates: start: 20071101, end: 20090317
  10. HERBESSER R [Concomitant]
     Indication: ANGINA PECTORIS
     Dosage: 100 MG, QD
     Route: 048
     Dates: start: 20071031, end: 20090317
  11. TAKEPRON [Concomitant]
     Indication: REFLUX OESOPHAGITIS
     Dosage: 30 MG, QD
     Route: 048
     Dates: start: 20071229, end: 20090317
  12. DOPS [Concomitant]
     Indication: ORTHOSTATIC HYPOTENSION
     Dosage: 100 MG, QD
     Route: 048
     Dates: start: 20081125, end: 20090317
  13. NAUZELIN [Concomitant]
     Indication: GASTRIC DISORDER
     Dosage: 5 MG, QD
     Route: 048
     Dates: start: 20081017, end: 20090317
  14. PURSENNID                          /00571901/ [Concomitant]
     Indication: CONSTIPATION
     Dosage: 12 MG, QD
     Route: 048
     Dates: start: 20081217, end: 20090317
  15. THYRADIN S [Concomitant]
     Indication: HYPOTHYROIDISM
     Dosage: 50 UG, QD
     Route: 048
     Dates: start: 20080927, end: 20090317

REACTIONS (2)
  - HYPOGLYCAEMIC COMA [None]
  - PNEUMONIA ASPIRATION [None]
